FAERS Safety Report 9003743 (Version 1)
Quarter: 2013Q1

REPORT INFORMATION
  Report Type: Spontaneous
  Country: US (occurrence: US)
  Receive Date: 20130108
  Receipt Date: 20130108
  Transmission Date: 20140127
  Serious: No
  Sender: FDA-Public Use
  Company Number: US-GLAXOSMITHKLINE-A0970832A

PATIENT
  Age: 88 Year
  Sex: Male

DRUGS (13)
  1. LOVAZA [Suspect]
     Indication: PRODUCT USED FOR UNKNOWN INDICATION
     Dosage: 1G THREE TIMES PER DAY
     Route: 050
     Dates: start: 20110630, end: 20120308
  2. ASPIRIN [Concomitant]
  3. ZYRTEC [Concomitant]
  4. COLACE [Concomitant]
  5. FERROUS SULFATE [Concomitant]
  6. PROSCAR [Concomitant]
  7. HYDROXYCHLOROQUINE [Concomitant]
  8. LEXAPRO [Concomitant]
  9. ALBUTEROL [Concomitant]
  10. PRILOSEC [Concomitant]
  11. FLOMAX [Concomitant]
  12. VITAMIN C [Concomitant]
  13. AMBIEN [Concomitant]

REACTIONS (10)
  - Rash macular [Recovering/Resolving]
  - Dermatitis [Unknown]
  - Skin exfoliation [Unknown]
  - Pruritus [Unknown]
  - Skin haemorrhage [Unknown]
  - Dry skin [Unknown]
  - Scratch [Unknown]
  - Incorrect route of drug administration [Unknown]
  - Skin exfoliation [Unknown]
  - Drug interaction [Unknown]
